FAERS Safety Report 9752900 (Version 1)
Quarter: 2013Q4

REPORT INFORMATION
  Report Type: Spontaneous
  Country: US (occurrence: US)
  Receive Date: 20131213
  Receipt Date: 20131213
  Transmission Date: 20140711
  Serious: Yes (Life-Threatening)
  Sender: FDA-Public Use
  Company Number: US-GLAXOSMITHKLINE-A1018880A

PATIENT
  Age: 85 Year
  Sex: Female

DRUGS (11)
  1. ARZERRA [Suspect]
     Indication: CHRONIC LYMPHOCYTIC LEUKAEMIA
     Dosage: 2000MG UNKNOWN
     Route: 042
     Dates: start: 201303
  2. NORVASC [Concomitant]
  3. SYNTHROID [Concomitant]
  4. GLUCOVANCE [Concomitant]
  5. PLETAL [Concomitant]
  6. ZYLOPRIM [Concomitant]
  7. LIPITOR [Concomitant]
  8. TOPROL [Concomitant]
  9. ULTRAM [Concomitant]
  10. BENICAR [Concomitant]
  11. NIFEDIPINE [Concomitant]

REACTIONS (2)
  - Neutropenia [Unknown]
  - Thrombocytopenia [Unknown]
